FAERS Safety Report 8470970-3 (Version None)
Quarter: 2012Q2

REPORT INFORMATION
  Report Type: 
  Country: None (occurrence: None)
  Receive Date: 20120627
  Receipt Date: 20120618
  Transmission Date: 20120825
  Serious: Yes (Death, Life-Threatening, Other)
  Sender: FDA-Public Use
  Company Number: JP-CELGENEUS-087-50794-12063339

PATIENT
  Age: 75 Year
  Sex: Female
  Weight: 38 kg

DRUGS (26)
  1. VIDAZA [Suspect]
     Dosage: 25 MILLIGRAM/SQ. METER
     Route: 041
     Dates: start: 20110615, end: 20110622
  2. GASMOTIN [Concomitant]
     Route: 065
     Dates: end: 20110422
  3. VIDAZA [Suspect]
     Dosage: 25 MILLIGRAM/SQ. METER
     Route: 058
     Dates: start: 20110516, end: 20110524
  4. TPN ELECTROLYTES IN PLASTIC CONTAINER [Concomitant]
     Route: 065
     Dates: start: 20110905, end: 20110925
  5. MORPHINE HYDROCHLORIDE HYDRATE [Concomitant]
     Route: 065
     Dates: start: 20110925, end: 20110925
  6. BACTRIM [Concomitant]
     Route: 065
     Dates: start: 20110325, end: 20110922
  7. SEROTONE [Concomitant]
     Route: 065
     Dates: start: 20110615, end: 20110902
  8. OXYCODONE HYDROCHLORIDE [Concomitant]
     Route: 065
     Dates: start: 20110922, end: 20110925
  9. ACETAMINOPHEN [Concomitant]
     Route: 065
     Dates: start: 20110905, end: 20110923
  10. PREDNISOLONE [Concomitant]
     Route: 065
     Dates: start: 20110914, end: 20110925
  11. IMIPENEM AND CILASTATIN SODIUM [Concomitant]
     Route: 065
     Dates: start: 20110905, end: 20110920
  12. METHYLPREDNISOLONE SODIUM SUCCINATE [Concomitant]
     Route: 065
     Dates: start: 20110916, end: 20110917
  13. VIDAZA [Suspect]
     Dosage: 25 MILLIGRAM/SQ. METER
     Route: 041
     Dates: start: 20110727, end: 20110803
  14. VIDAZA [Suspect]
     Dosage: 25 MILLIGRAM/SQ. METER
     Route: 041
     Dates: start: 20110825, end: 20110902
  15. FAMOTIDINE [Concomitant]
     Route: 065
     Dates: end: 20110922
  16. HOCHUEKKITO (CHINESE HERBAL EXTRACT) [Concomitant]
     Route: 065
  17. ITRACONAZOLE [Concomitant]
     Route: 065
     Dates: start: 20110325, end: 20110919
  18. GASTROM [Concomitant]
     Route: 065
     Dates: start: 20110424, end: 20110922
  19. VIDAZA [Suspect]
     Indication: MYELODYSPLASTIC SYNDROME
     Dosage: 75 MILLIGRAM/SQ. METER
     Route: 058
     Dates: start: 20110323, end: 20110331
  20. MAGMITT [Concomitant]
     Route: 065
     Dates: end: 20110422
  21. EXJADE [Concomitant]
     Route: 065
     Dates: start: 20110507, end: 20110922
  22. NERIPROCT [Concomitant]
     Route: 065
     Dates: start: 20110613
  23. MEROPENEM [Concomitant]
     Route: 065
     Dates: start: 20110921, end: 20110925
  24. LENDORMIN [Concomitant]
     Route: 065
     Dates: start: 20110410, end: 20110922
  25. KYTRIL [Concomitant]
     Route: 065
     Dates: start: 20110323
  26. FUNGUARD [Concomitant]
     Route: 065
     Dates: start: 20110920, end: 20110925

REACTIONS (7)
  - PRURITUS [None]
  - HAEMORRHAGE SUBCUTANEOUS [None]
  - HYPOKALAEMIA [None]
  - ACUTE MYELOID LEUKAEMIA [None]
  - C-REACTIVE PROTEIN INCREASED [None]
  - BLOOD LACTATE DEHYDROGENASE INCREASED [None]
  - HAEMORRHOIDS [None]
